FAERS Safety Report 7330421-9 (Version None)
Quarter: 2011Q1

REPORT INFORMATION
  Report Type: 
  Country: None (occurrence: None)
  Receive Date: 20110304
  Receipt Date: 20110225
  Transmission Date: 20110831
  Serious: No
  Sender: FDA-Public Use
  Company Number: US-BIOGENIDEC-2011BI005119

PATIENT
  Age: 52 Year
  Sex: Female

DRUGS (1)
  1. TYSABRI [Suspect]
     Indication: MULTIPLE SCLEROSIS
     Route: 042
     Dates: start: 20080221

REACTIONS (7)
  - EAR INFECTION [None]
  - INFLUENZA [None]
  - BRONCHITIS [None]
  - MEMORY IMPAIRMENT [None]
  - MALAISE [None]
  - SINUSITIS [None]
  - MULTIPLE SCLEROSIS RELAPSE [None]
